FAERS Safety Report 18270293 (Version 1)
Quarter: 2020Q3

REPORT INFORMATION
  Report Type: Spontaneous
  Country: RO (occurrence: RO)
  Receive Date: 20200916
  Receipt Date: 20200916
  Transmission Date: 20201103
  Serious: Yes (Life-Threatening, Hospitalization)
  Sender: FDA-Public Use
  Company Number: RO-TEVA-2020-RO-1826799

PATIENT
  Age: 86 Year
  Sex: Female

DRUGS (3)
  1. DASATINIB 50 MG [Concomitant]
     Active Substance: DASATINIB
     Dosage: 50 MILLIGRAM DAILY;
  2. IMATINIB 400MG CAPSULE [Suspect]
     Active Substance: IMATINIB
     Indication: CHRONIC MYELOID LEUKAEMIA
     Dosage: 400 MILLIGRAM DAILY;
  3. IMATINIB 100MG CAPSULE [Concomitant]
     Dosage: 100 MILLIGRAM DAILY;

REACTIONS (2)
  - Anuria [Unknown]
  - Pyrexia [Unknown]
